FAERS Safety Report 4831887-6 (Version None)
Quarter: 2005Q4

REPORT INFORMATION
  Report Type: 
  Country: None (occurrence: None)
  Receive Date: 20051118
  Receipt Date: 20051109
  Transmission Date: 20060501
  Serious: Yes (Other)
  Sender: FDA-Public Use
  Company Number: US-ROCHE-424479

PATIENT
  Age: 63 Year
  Sex: Male
  Weight: 104.3 kg

DRUGS (1)
  1. VALIUM [Suspect]
     Route: 048
     Dates: start: 19910615

REACTIONS (1)
  - OPEN ANGLE GLAUCOMA [None]
